FAERS Safety Report 16005790 (Version 3)
Quarter: 2019Q1

REPORT INFORMATION
  Report Type: Spontaneous
  Country: JP (occurrence: JP)
  Receive Date: 20190226
  Receipt Date: 20190327
  Transmission Date: 20190418
  Serious: Yes (Hospitalization, Other)
  Sender: FDA-Public Use
  Company Number: JP-PFIZER INC-2019082321

PATIENT
  Age: 70 Year
  Sex: Female
  Weight: 76 kg

DRUGS (27)
  1. CALCIUM FOLINATE [Suspect]
     Active Substance: LEUCOVORIN CALCIUM
     Indication: COLON CANCER
     Dosage: 350 MG, CYCLIC (DAY 1; (200MG/M2), TOTAL OF 14 CYCLES))
     Route: 041
  2. ELPLAT [Suspect]
     Active Substance: OXALIPLATIN
     Indication: METASTASES TO LIVER
  3. DEXAMETHASONE. [Concomitant]
     Active Substance: DEXAMETHASONE
     Indication: PROPHYLAXIS OF NAUSEA AND VOMITING
     Dosage: 4.95 MG, UNK, (DAY 1)
  4. APREPITANT. [Concomitant]
     Active Substance: APREPITANT
     Indication: PROPHYLAXIS OF NAUSEA AND VOMITING
     Dosage: 125 MG, UNK (DAY 1)
  5. MAGNESIUM OXIDE. [Concomitant]
     Active Substance: MAGNESIUM OXIDE
     Dosage: 330 MG, 3X/DAY, (1 TABLET PER DOSE, 3 TIMES A DAY, AFTER EVERY MEAL)
     Route: 048
  6. DOXYCYCLINE [DOXYCYCLINE HYDROCHLORIDE] [Concomitant]
     Dosage: 100 MG, DAILY (1 TABLET PER DOSE, ONCE A DAY, AFTER BREAKFAST)
     Route: 048
  7. TS-1 [Suspect]
     Active Substance: GIMERACIL\OTERACIL\TEGAFUR
     Indication: METASTASES TO LIVER
     Dosage: UNK, CYCLIC (7 COURSES)
  8. BEVACIZUMAB. [Suspect]
     Active Substance: BEVACIZUMAB
     Indication: METASTASES TO LIVER
     Dosage: UNK, CYCLIC (7 COURSES)
  9. GRANISETRON [Concomitant]
     Active Substance: GRANISETRON
     Indication: PROPHYLAXIS OF NAUSEA AND VOMITING
     Dosage: 3 MG, UNK (DAY 1)
  10. ROSUVASTATIN. [Concomitant]
     Active Substance: ROSUVASTATIN
     Dosage: 5 MG, DAILY (1 TABLET PER DOSE, ONCE A DAY, AFTER BREAK FAST)
     Route: 048
  11. CALCIUM FOLINATE [Suspect]
     Active Substance: LEUCOVORIN CALCIUM
     Indication: METASTASES TO OVARY
  12. ELPLAT [Suspect]
     Active Substance: OXALIPLATIN
     Indication: METASTASES TO OVARY
  13. TS-1 [Suspect]
     Active Substance: GIMERACIL\OTERACIL\TEGAFUR
     Indication: METASTASES TO OVARY
  14. PANITUMUMAB [Suspect]
     Active Substance: PANITUMUMAB
     Indication: METASTASES TO OVARY
  15. CALCIUM FOLINATE [Suspect]
     Active Substance: LEUCOVORIN CALCIUM
     Indication: METASTASES TO LIVER
  16. ELPLAT [Suspect]
     Active Substance: OXALIPLATIN
     Indication: COLON CANCER
     Dosage: UNK, 1X/DAY (TOTAL OF 7 CYCLES)
     Route: 041
  17. FLUOROURACIL. [Suspect]
     Active Substance: FLUOROURACIL
     Indication: METASTASES TO LIVER
     Dosage: 700 MG, CYCLIC (DAY 1; 400 MG/M2)
     Route: 040
  18. DEXAMETHASONE. [Suspect]
     Active Substance: DEXAMETHASONE
     Indication: PROPHYLAXIS OF NAUSEA AND VOMITING
  19. SENNOSIDE [SENNOSIDE A+B CALCIUM] [Concomitant]
     Active Substance: SENNOSIDES A AND B
     Dosage: 2 DF, UNK (12 MG; 2 TABLETS PER DOSE, WHEN CONSTIPATED))
     Route: 048
  20. CAMPTO [Suspect]
     Active Substance: IRINOTECAN
     Indication: COLON CANCER
     Dosage: 265 MG, CYCLIC (DAY 1; 150 MG/M2, TOTAL OF 14 CYCLES)
     Route: 041
  21. CAMPTO [Suspect]
     Active Substance: IRINOTECAN
     Indication: METASTASES TO OVARY
  22. FLUOROURACIL. [Suspect]
     Active Substance: FLUOROURACIL
     Indication: METASTASES TO OVARY
     Dosage: 4200 MG, CYCLIC (CONTINUOUS INTRAVENOUS INFUSION (2,400 MG/M2); BEGINNING DAY 1, 46 HOURS)
     Route: 042
  23. PANITUMUMAB [Suspect]
     Active Substance: PANITUMUMAB
     Indication: METASTASES TO LIVER
     Dosage: 450 MG, CYCLIC (6 MG/KG; DAY 1)
  24. BEVACIZUMAB. [Suspect]
     Active Substance: BEVACIZUMAB
     Indication: METASTASES TO OVARY
  25. DEXAMETHASONE. [Suspect]
     Active Substance: DEXAMETHASONE
     Indication: PROPHYLAXIS
     Dosage: 4 MG, 1X/DAY, (DAY 2-3)
     Route: 048
  26. CAMPTO [Suspect]
     Active Substance: IRINOTECAN
     Indication: METASTASES TO LIVER
  27. APREPITANT. [Concomitant]
     Active Substance: APREPITANT
     Dosage: 80 MG, UNK (DAY 2-3)

REACTIONS (7)
  - Diarrhoea [Unknown]
  - Generalised oedema [Recovering/Resolving]
  - Dermatitis acneiform [Unknown]
  - Paronychia [Unknown]
  - Weight increased [Not Recovered/Not Resolved]
  - Hypomagnesaemia [Unknown]
  - Deep vein thrombosis [Unknown]
